FAERS Safety Report 18595744 (Version 1)
Quarter: 2020Q4

REPORT INFORMATION
  Report Type: Spontaneous
  Country: FR (occurrence: FR)
  Receive Date: 20201209
  Receipt Date: 20201209
  Transmission Date: 20210114
  Serious: Yes (Other)
  Sender: FDA-Public Use
  Company Number: FR-ASTRAZENECA-2020SF60508

PATIENT
  Age: 63 Year
  Sex: Male
  Weight: 70 kg

DRUGS (7)
  1. OMEPRAZOLE. [Suspect]
     Active Substance: OMEPRAZOLE
     Indication: PROPHYLAXIS AGAINST GASTROINTESTINAL ULCER
     Route: 048
     Dates: start: 20200210, end: 20200619
  2. VALACICLOVIR [Suspect]
     Active Substance: VALACYCLOVIR HYDROCHLORIDE
     Indication: INFECTION PROPHYLAXIS
     Route: 048
     Dates: start: 20191213, end: 202007
  3. VELCADE [Suspect]
     Active Substance: BORTEZOMIB
     Indication: PLASMA CELL MYELOMA
     Route: 058
     Dates: start: 20191213, end: 20200424
  4. KARDEGIC [Concomitant]
     Active Substance: ASPIRIN DL-LYSINE
  5. AMOXICILLINE [Suspect]
     Active Substance: AMOXICILLIN
     Indication: INFECTION PROPHYLAXIS
     Route: 048
     Dates: start: 20191213, end: 20200716
  6. REVLIMID [Suspect]
     Active Substance: LENALIDOMIDE
     Indication: PLASMA CELL MYELOMA
     Dosage: 1GEL /DAY OVER 14 DAYS
     Route: 048
     Dates: start: 20191213, end: 20200424
  7. LACTULOSE. [Suspect]
     Active Substance: LACTULOSE
     Indication: CONSTIPATION
     Route: 048
     Dates: start: 20200210, end: 20200619

REACTIONS (1)
  - Neuralgia [Recovered/Resolved with Sequelae]

NARRATIVE: CASE EVENT DATE: 202003
